FAERS Safety Report 24838383 (Version 1)
Quarter: 2025Q1

REPORT INFORMATION
  Report Type: Report from Study
  Country: US (occurrence: US)
  Receive Date: 20250113
  Receipt Date: 20250113
  Transmission Date: 20250409
  Serious: Yes (Hospitalization)
  Sender: ABBVIE
  Company Number: CA-ABBVIE-6076094

PATIENT
  Age: 36 Year
  Sex: Female

DRUGS (2)
  1. RINVOQ [Suspect]
     Active Substance: UPADACITINIB
     Indication: Psoriatic arthropathy
     Dosage: FORM STRENGTH: 15 MG
     Route: 048
     Dates: start: 2023, end: 202409
  2. RINVOQ [Suspect]
     Active Substance: UPADACITINIB
     Indication: Psoriatic arthropathy
     Dosage: FORM STRENGTH: 15 MG. FIRST ADMIN DATE 2024.
     Route: 048

REACTIONS (5)
  - Sepsis [Unknown]
  - Pain [Unknown]
  - Psoriasis [Unknown]
  - Urinary tract infection [Unknown]
  - Kidney infection [Unknown]

NARRATIVE: CASE EVENT DATE: 20240101
